FAERS Safety Report 12891251 (Version 1)
Quarter: 2016Q4

REPORT INFORMATION
  Report Type: Spontaneous
  Country: US (occurrence: US)
  Receive Date: 20161026
  Receipt Date: 20161026
  Transmission Date: 20170207
  Serious: Yes (Life-Threatening, Hospitalization)
  Sender: FDA-Public Use
  Company Number: None

PATIENT
  Age: 2 Year
  Sex: Male
  Weight: 14.4 kg

DRUGS (3)
  1. G.E. BROMPHENIR-PSEUDOEPHED-DM [Suspect]
     Active Substance: BROMPHENIRAMINE MALEATE\DEXTROMETHORPHAN HYDROBROMIDE\PSEUDOEPHEDRINE HYDROCHLORIDE
     Indication: NASOPHARYNGITIS
     Dosage: ?          QUANTITY:2.5 ML;?
     Route: 048
     Dates: start: 20161022, end: 20161023
  2. MOTRIN [Concomitant]
     Active Substance: IBUPROFEN
  3. G.E. BROMPHENIR-PSEUDOEPHED-DM [Suspect]
     Active Substance: BROMPHENIRAMINE MALEATE\DEXTROMETHORPHAN HYDROBROMIDE\PSEUDOEPHEDRINE HYDROCHLORIDE
     Indication: PULMONARY CONGESTION
     Dosage: ?          QUANTITY:2.5 ML;?
     Route: 048
     Dates: start: 20161022, end: 20161023

REACTIONS (2)
  - Febrile convulsion [None]
  - White blood cell count increased [None]

NARRATIVE: CASE EVENT DATE: 20161023
